FAERS Safety Report 24234767 (Version 2)
Quarter: 2024Q3

REPORT INFORMATION
  Report Type: Spontaneous
  Country: FR (occurrence: FR)
  Receive Date: 20240821
  Receipt Date: 20240906
  Transmission Date: 20241016
  Serious: Yes (Death, Hospitalization, Other)
  Sender: TEVA
  Company Number: FR-TEVA-VS-3233408

PATIENT
  Age: 59 Year
  Sex: Female

DRUGS (4)
  1. VALGANCICLOVIR [Suspect]
     Active Substance: VALGANCICLOVIR
     Indication: Cytomegalovirus infection
     Route: 065
  2. MARIBAVIR [Suspect]
     Active Substance: MARIBAVIR
     Indication: Cytomegalovirus infection
     Route: 065
  3. FOSCARNET [Suspect]
     Active Substance: FOSCARNET
     Indication: Cytomegalovirus infection
     Dosage: ON DAYS OF HAEMODIALYSIS
     Route: 042
  4. FOSCARNET [Suspect]
     Active Substance: FOSCARNET
     Indication: Cytomegalovirus infection
     Route: 042

REACTIONS (2)
  - Drug resistance [Unknown]
  - Drug ineffective [Fatal]
